FAERS Safety Report 14298972 (Version 1)
Quarter: 2017Q4

REPORT INFORMATION
  Report Type: Spontaneous
  Country: US (occurrence: US)
  Receive Date: 20171217
  Receipt Date: 20171217
  Transmission Date: 20180321
  Serious: Yes (Other)
  Sender: FDA-Public Use
  Company Number: None

PATIENT
  Age: 33 Year
  Sex: Female
  Weight: 49.5 kg

DRUGS (15)
  1. GINSENG [Concomitant]
     Active Substance: ASIAN GINSENG
  2. METOPROLOL SUCC [Suspect]
     Active Substance: METOPROLOL SUCCINATE
     Indication: TACHYCARDIA
     Dosage: QUANTITY:30 TABLET(S);OTHER FREQUENCY:1X A DAY - 3 DAYS;?
     Route: 048
     Dates: start: 20171030, end: 20171101
  3. LAMICTAL [Concomitant]
     Active Substance: LAMOTRIGINE
  4. VITAMIN C [Concomitant]
     Active Substance: ASCORBIC ACID
  5. GABAPENTIN. [Concomitant]
     Active Substance: GABAPENTIN
  6. CLONAPIN [Concomitant]
     Active Substance: CLONAZEPAM
  7. TREZIX [Concomitant]
     Active Substance: ACETAMINOPHEN\CAFFEINE\DIHYDROCODEINE BITARTRATE
  8. REMERON [Concomitant]
     Active Substance: MIRTAZAPINE
  9. WOMEN^S ONE A DAY MULTI VITAMIN [Concomitant]
  10. HYDROXYZINE [Concomitant]
     Active Substance: HYDROXYZINE HYDROCHLORIDE
  11. TRI-SPRINTEC [Concomitant]
     Active Substance: ETHINYL ESTRADIOL\NORGESTIMATE
  12. SUPER B-COMPLEX [Concomitant]
  13. IRON [Concomitant]
     Active Substance: IRON
  14. POTASSIUM [Concomitant]
     Active Substance: POTASSIUM
  15. VALERIAN ROOT [Concomitant]
     Active Substance: VALERIAN

REACTIONS (9)
  - Pain [None]
  - Abdominal discomfort [None]
  - Tachycardia [None]
  - Flank pain [None]
  - Haematuria [None]
  - Fatigue [None]
  - Cystitis interstitial [None]
  - Pyrexia [None]
  - Headache [None]

NARRATIVE: CASE EVENT DATE: 20171031
